FAERS Safety Report 8264750-1 (Version None)
Quarter: 2012Q2

REPORT INFORMATION
  Report Type: 
  Country: None (occurrence: None)
  Receive Date: 20120406
  Receipt Date: 20120329
  Transmission Date: 20120825
  Serious: Yes (Hospitalization, Other)
  Sender: FDA-Public Use
  Company Number: CA-JNJFOC-20111103176

PATIENT
  Sex: Female
  Weight: 91.2 kg

DRUGS (3)
  1. REMICADE [Suspect]
     Route: 042
     Dates: start: 20071218
  2. REMICADE [Suspect]
     Indication: CROHN'S DISEASE
     Route: 042
     Dates: start: 20111101
  3. REMICADE [Suspect]
     Route: 042
     Dates: start: 20120301

REACTIONS (3)
  - UTERINE CYST [None]
  - UTERINE OPERATION [None]
  - URINARY TRACT INFECTION [None]
